FAERS Safety Report 4310873-9 (Version None)
Quarter: 2004Q1

REPORT INFORMATION
  Report Type: 
  Country: None (occurrence: None)
  Receive Date: 20040302
  Receipt Date: 20040220
  Transmission Date: 20041129
  Serious: Yes (Other)
  Sender: FDA-Public Use
  Company Number: NZ-JNJFOC-20040204893

PATIENT
  Age: 60 Year
  Sex: Male
  Weight: 78 kg

DRUGS (7)
  1. NESIRITIDE - BLINIDED (NESIRITIDE) INJECTION [Suspect]
     Indication: ACUTE MYOCARDIAL INFARCTION
     Dosage: 1.5 MG NESIRITIDE IN 5 MLS NORMAL SALINE (NS) ADDED TO 245 MLS OF NS - OR - 250 MLS OF NS AS PLACEBO
     Dates: start: 20040202, end: 20040203
  2. ASPIRIN (ACETYSALICYLIC ACID) [Concomitant]
  3. SIMVASTATIN [Concomitant]
  4. ENALAPRIL MALEATE [Concomitant]
  5. METOPROLOL (METOPROLOL) [Concomitant]
  6. CLOPIDOGREL BISULFATE [Concomitant]
  7. SLOW-K [Concomitant]

REACTIONS (4)
  - DIABETES MELLITUS NON-INSULIN-DEPENDENT [None]
  - HYPOTENSION [None]
  - HYPOVOLAEMIA [None]
  - RENAL IMPAIRMENT [None]
